FAERS Safety Report 9815838 (Version 1)
Quarter: 2014Q1

REPORT INFORMATION
  Report Type: Spontaneous
  Country: GB (occurrence: GB)
  Receive Date: 20140114
  Receipt Date: 20140114
  Transmission Date: 20141002
  Serious: Yes (Disabling)
  Sender: FDA-Public Use
  Company Number: GB-PFIZER INC-2014005964

PATIENT
  Age: 78 Year
  Sex: Female
  Weight: 74.2 kg

DRUGS (11)
  1. DOXAZOSIN MESILATE [Suspect]
     Dosage: UNK
     Dates: start: 20131205
  2. WARFARIN SODIUM [Concomitant]
     Dosage: UNK
     Dates: start: 20130906
  3. TELMISARTAN [Concomitant]
     Dosage: UNK
     Dates: start: 20130923, end: 20131021
  4. TELMISARTAN [Concomitant]
     Dates: start: 20131118, end: 20131216
  5. ATENOLOL [Concomitant]
     Dosage: UNK
     Dates: start: 20131008, end: 20131216
  6. SIMVASTATIN [Concomitant]
     Dosage: UNK
     Dates: start: 20131017, end: 20131114
  7. SIMVASTATIN [Concomitant]
     Dates: start: 20131205, end: 20140102
  8. ISPAGHULA HUSK [Concomitant]
     Dosage: UNK
     Dates: start: 20131118, end: 20131216
  9. DOMPERIDONE [Concomitant]
     Dosage: UNK
     Dates: start: 20131209, end: 20131219
  10. NAPROXEN [Concomitant]
     Dosage: UNK
     Dates: start: 20131209
  11. IBUPROFEN [Concomitant]
     Dosage: UNK
     Dates: start: 20131212

REACTIONS (4)
  - Palpitations [Recovered/Resolved]
  - Pollakiuria [Recovered/Resolved]
  - Micturition urgency [Unknown]
  - Pain [Unknown]
